FAERS Safety Report 23363459 (Version 6)
Quarter: 2024Q3

REPORT INFORMATION
  Report Type: Spontaneous
  Country: CA (occurrence: CA)
  Receive Date: 20240103
  Receipt Date: 20240923
  Transmission Date: 20241016
  Serious: Yes (Other)
  Sender: PFIZER
  Company Number: CA-PFIZER INC-202200742439

PATIENT
  Age: 58 Year
  Sex: Female

DRUGS (7)
  1. RUXIENCE [Suspect]
     Active Substance: RITUXIMAB-PVVR
     Indication: Interstitial lung disease
     Dosage: 1000 MG, DAY 1 AND DAY 15
     Route: 042
     Dates: start: 20220912, end: 20220912
  2. RUXIENCE [Suspect]
     Active Substance: RITUXIMAB-PVVR
     Dosage: 1000 MG, DAY 1 AND DAY 15
     Route: 042
     Dates: start: 20220912, end: 20220926
  3. RUXIENCE [Suspect]
     Active Substance: RITUXIMAB-PVVR
     Dosage: 1000 MG, DAY 1 AND DAY 15
     Route: 042
     Dates: start: 20220926, end: 20220926
  4. RUXIENCE [Suspect]
     Active Substance: RITUXIMAB-PVVR
     Dosage: 1000 MG, DAY 1 SUBSEQUENT TREATMENT (DAY 1 AND DAY 15)
     Route: 042
     Dates: start: 20230324
  5. RUXIENCE [Suspect]
     Active Substance: RITUXIMAB-PVVR
     Dosage: 1000 MG, DAY 1 SUBSEQUENT TREATMENT (DAY 1 AND DAY 15)
     Route: 042
     Dates: start: 20240129
  6. RUXIENCE [Suspect]
     Active Substance: RITUXIMAB-PVVR
     Dosage: 1000 MG, DAY 1 SUBSEQUENT TREATMENT (DAY 1 AND DAY 15)
     Route: 042
     Dates: start: 20240212
  7. RUXIENCE [Suspect]
     Active Substance: RITUXIMAB-PVVR
     Dosage: 1000 MG, DAY 1 SUBSEQUENT TREATMENT (DAY 1 AND DAY 15)
     Route: 042
     Dates: start: 20240405

REACTIONS (7)
  - Respiratory failure [Recovered/Resolved]
  - Cytomegalovirus colitis [Unknown]
  - Infection [Unknown]
  - Fatigue [Recovered/Resolved]
  - Drug effective for unapproved indication [Unknown]
  - Off label use [Unknown]
  - Incorrect product administration duration [Unknown]

NARRATIVE: CASE EVENT DATE: 20220912
